FAERS Safety Report 5125909-5 (Version None)
Quarter: 2006Q4

REPORT INFORMATION
  Report Type: 
  Country: None (occurrence: None)
  Receive Date: 20061012
  Receipt Date: 20061006
  Transmission Date: 20070319
  Serious: Yes (Hospitalization)
  Sender: FDA-Public Use
  Company Number: 2006-00107

PATIENT
  Age: 76 Year
  Sex: Male

DRUGS (8)
  1. PAROXETINE HCL [Suspect]
     Indication: DRUG USE FOR UNKNOWN INDICATION
     Dosage: 20MG PER DAY
     Route: 048
  2. ASPIRIN [Suspect]
     Indication: DRUG USE FOR UNKNOWN INDICATION
     Dosage: 100MG PER DAY
     Route: 048
     Dates: end: 20060821
  3. SINTROM [Suspect]
     Indication: DRUG USE FOR UNKNOWN INDICATION
     Route: 048
     Dates: end: 20060821
  4. NIFEDIPINE [Concomitant]
  5. LORAZEPAM [Concomitant]
  6. ISOCAL [Concomitant]
     Route: 048
  7. CYANOCOBALAMIN [Concomitant]
     Route: 058
  8. FOLVITE [Concomitant]
     Dosage: 1MG PER DAY
     Route: 048

REACTIONS (4)
  - ANAEMIA [None]
  - GASTRITIS EROSIVE [None]
  - HAEMORRHAGE [None]
  - PROTHROMBIN TIME PROLONGED [None]
